FAERS Safety Report 5485621-X (Version None)
Quarter: 2007Q4

REPORT INFORMATION
  Report Type: 
  Country: None (occurrence: None)
  Receive Date: 20071015
  Receipt Date: 20071003
  Transmission Date: 20080405
  Serious: Yes (Hospitalization)
  Sender: FDA-Public Use
  Company Number: US-ELI_LILLY_AND_COMPANY-US200710002133

PATIENT
  Sex: Female

DRUGS (1)
  1. ALIMTA [Suspect]
     Dosage: 785 MG, UNK
     Route: 042
     Dates: start: 20070829

REACTIONS (1)
  - STEVENS-JOHNSON SYNDROME [None]
